FAERS Safety Report 7930983-4 (Version None)
Quarter: 2011Q4

REPORT INFORMATION
  Report Type: 
  Country: None (occurrence: None)
  Receive Date: 20111121
  Receipt Date: 20111114
  Transmission Date: 20120403
  Serious: Yes (Hospitalization)
  Sender: FDA-Public Use
  Company Number: DE-UCBSA-035307

PATIENT
  Age: 29 Year
  Sex: Male
  Weight: 96 kg

DRUGS (4)
  1. IBUPROFEN [Concomitant]
     Indication: ANKYLOSING SPONDYLITIS
     Route: 048
     Dates: start: 20110429
  2. OMEPRAZOLE [Concomitant]
     Indication: PROPHYLAXIS AGAINST GASTROINTESTINAL ULCER
     Route: 048
     Dates: start: 20110429
  3. TILIDIN [Concomitant]
     Indication: ANKYLOSING SPONDYLITIS
     Dosage: 20 DROPS
     Route: 048
     Dates: start: 20110429
  4. PLACEBO/CERTOLIZUMAB PEGOL [Suspect]
     Indication: ANKYLOSING SPONDYLITIS
     Route: 058
     Dates: start: 20110531

REACTIONS (1)
  - OESOPHAGEAL CANDIDIASIS [None]
